FAERS Safety Report 4315945-0 (Version None)
Quarter: 2004Q1

REPORT INFORMATION
  Report Type: 
  Country: None (occurrence: None)
  Receive Date: 20040311
  Receipt Date: 20040311
  Transmission Date: 20041129
  Serious: No
  Sender: FDA-Public Use
  Company Number: None

PATIENT
  Age: 86 Year
  Sex: Female

DRUGS (11)
  1. VANCOMYCIN [Suspect]
     Indication: STAPHYLOCOCCAL INFECTION
     Dosage: 1G Q 48 IV
     Route: 042
     Dates: start: 20040113, end: 20040115
  2. VANCOMYCIN [Suspect]
     Indication: STAPHYLOCOCCAL INFECTION
     Dosage: 250MG Q72 IV
     Route: 042
     Dates: start: 20040204, end: 20040211
  3. MIACALCIN [Concomitant]
  4. HYDROCODONE [Concomitant]
  5. MEGESTROL [Concomitant]
  6. MAVIK [Concomitant]
  7. CELEBREX [Concomitant]
  8. MULTI. VIT [Concomitant]
  9. FERROUS GLUC [Concomitant]
  10. MILK OF MAG [Concomitant]
  11. MAALOX [Concomitant]

REACTIONS (5)
  - DERMATITIS EXFOLIATIVE [None]
  - EYE DISORDER [None]
  - PRURITUS [None]
  - RASH [None]
  - URTICARIA [None]
